FAERS Safety Report 15001329 (Version 1)
Quarter: 2018Q2

REPORT INFORMATION
  Report Type: Spontaneous
  Country: US (occurrence: US)
  Receive Date: 20180612
  Receipt Date: 20180612
  Transmission Date: 20180711
  Serious: No
  Sender: FDA-Public Use
  Company Number: US-BAYER-2018-110597

PATIENT
  Sex: Male

DRUGS (1)
  1. MIRALAX [Suspect]
     Active Substance: POLYETHYLENE GLYCOL 3350
     Dosage: 17 G, UNK(IN 4-8 OF WATER)
     Route: 048

REACTIONS (4)
  - Poor quality drug administered [Unknown]
  - Product prescribing issue [Unknown]
  - Product physical issue [Unknown]
  - Product use issue [Unknown]
